FAERS Safety Report 11878594 (Version 1)
Quarter: 2015Q4

REPORT INFORMATION
  Report Type: Spontaneous
  Country: US (occurrence: US)
  Receive Date: 20151230
  Receipt Date: 20151230
  Transmission Date: 20160305
  Serious: Yes (Other)
  Sender: FDA-Public Use
  Company Number: US-BAYER-2015-496287

PATIENT
  Sex: Female

DRUGS (5)
  1. BIOTIN [Concomitant]
     Active Substance: BIOTIN
  2. RANITIDINE [Concomitant]
     Active Substance: RANITIDINE\RANITIDINE HYDROCHLORIDE
  3. MIRENA [Suspect]
     Active Substance: LEVONORGESTREL
  4. VITAMIN D [Concomitant]
     Active Substance: CHOLECALCIFEROL
  5. TECFIDERA [Concomitant]
     Active Substance: DIMETHYL FUMARATE

REACTIONS (3)
  - Multiple sclerosis [None]
  - Hot flush [None]
  - Erythema [None]
